FAERS Safety Report 25577679 (Version 3)
Quarter: 2025Q4

REPORT INFORMATION
  Report Type: Spontaneous
  Country: JP (occurrence: JP)
  Receive Date: 20250718
  Receipt Date: 20251215
  Transmission Date: 20260117
  Serious: Yes (Death, Hospitalization, Other)
  Sender: JAZZ
  Company Number: JP-JAZZ PHARMACEUTICALS-2025-JP-017607

PATIENT
  Age: 77 Year
  Sex: Female

DRUGS (4)
  1. VYXEOS [Suspect]
     Active Substance: CYTARABINE\DAUNORUBICIN
     Indication: Acute myeloid leukaemia
     Dosage: 100 UNITS DAILY
  2. FUROSEMIDE [Concomitant]
     Active Substance: FUROSEMIDE
     Indication: Product used for unknown indication
     Dosage: UNK
  3. DOPAMINE HYDROCHLORIDE [Concomitant]
     Active Substance: DOPAMINE HYDROCHLORIDE
     Indication: Product used for unknown indication
     Dosage: UNK
  4. TOLVAPTAN [Concomitant]
     Active Substance: TOLVAPTAN
     Indication: Product used for unknown indication
     Dosage: UNK

REACTIONS (18)
  - Cardiac failure [Fatal]
  - Immobilisation syndrome [Unknown]
  - Anaemia [Unknown]
  - Pleural effusion [Unknown]
  - Febrile neutropenia [Unknown]
  - Enterococcal bacteraemia [Unknown]
  - Anaemia [Unknown]
  - Bone marrow failure [Unknown]
  - Pleural effusion [Unknown]
  - Neutrophil count decreased [Unknown]
  - Hypoxia [Unknown]
  - Ileus paralytic [Recovering/Resolving]
  - Generalised oedema [Unknown]
  - Pyrexia [Unknown]
  - Generalised oedema [Unknown]
  - Generalised oedema [Unknown]
  - Pyrexia [Unknown]
  - Platelet count decreased [Unknown]

NARRATIVE: CASE EVENT DATE: 20250101
